FAERS Safety Report 7221992-1 (Version None)
Quarter: 2011Q1

REPORT INFORMATION
  Report Type: 
  Country: None (occurrence: None)
  Receive Date: 20110112
  Receipt Date: 20101231
  Transmission Date: 20110831
  Serious: Yes (Hospitalization)
  Sender: FDA-Public Use
  Company Number: FR-SANOFI-AVENTIS-2010SA078676

PATIENT
  Age: 89 Year
  Sex: Female

DRUGS (7)
  1. IMOVANE [Suspect]
     Indication: SLEEP DISORDER
     Route: 048
     Dates: start: 20070101
  2. ACTONEL [Suspect]
     Route: 048
     Dates: start: 20070101
  3. LERCAN [Suspect]
     Route: 048
     Dates: start: 20070101
  4. SINTROM [Suspect]
     Route: 048
     Dates: start: 20000620, end: 20100610
  5. SEROPRAM [Suspect]
     Route: 048
     Dates: start: 20070101
  6. LASIX [Suspect]
     Route: 048
     Dates: start: 20070101
  7. EUPRESSYL [Suspect]
     Route: 048

REACTIONS (1)
  - HAEMATOMA [None]
